FAERS Safety Report 5427063-9 (Version None)
Quarter: 2007Q3

REPORT INFORMATION
  Report Type: 
  Country: None (occurrence: None)
  Receive Date: 20070824
  Receipt Date: 20070824
  Transmission Date: 20080115
  Serious: Yes (Life-Threatening, Hospitalization)
  Sender: FDA-Public Use
  Company Number: None

PATIENT
  Age: 76 Year
  Sex: Female
  Weight: 90.3 kg

DRUGS (16)
  1. WARFARIN SODIUM [Suspect]
     Indication: DEEP VEIN THROMBOSIS
     Dosage: 7.5MG PO QD
     Route: 048
     Dates: start: 20061101
  2. ADVAIR DISKUS 100/50 [Concomitant]
  3. COLACE [Concomitant]
  4. CYMBALTA [Concomitant]
  5. ENALAPRIL [Concomitant]
  6. ASPIRIN [Concomitant]
  7. SINGULAIR [Concomitant]
  8. FENTANYL TRANSDERMAL SYSTEM [Concomitant]
  9. FERROUS SULFATE TAB [Concomitant]
  10. GABAPENTIN [Concomitant]
  11. TOPROL-XL [Concomitant]
  12. LASIX [Concomitant]
  13. OXYCONTIN [Concomitant]
  14. PERCOCET [Concomitant]
  15. PRILOSEC OTC [Concomitant]
  16. SENOKOT [Concomitant]

REACTIONS (7)
  - ABDOMINAL PAIN UPPER [None]
  - HAEMATOCHEZIA [None]
  - HAEMATOCRIT DECREASED [None]
  - HAEMOGLOBIN DECREASED [None]
  - INTERNATIONAL NORMALISED RATIO INCREASED [None]
  - NAUSEA [None]
  - VOMITING [None]
